FAERS Safety Report 10005239 (Version 3)
Quarter: 2014Q1

REPORT INFORMATION
  Report Type: Spontaneous
  Country: DE (occurrence: DE)
  Receive Date: 20140312
  Receipt Date: 20140326
  Transmission Date: 20141002
  Serious: Yes (Hospitalization)
  Sender: FDA-Public Use
  Company Number: PHHY2014DE029182

PATIENT
  Age: 50 Year
  Sex: Female
  Weight: 56 kg

DRUGS (1)
  1. GILENYA [Suspect]
     Indication: MULTIPLE SCLEROSIS
     Dosage: 0.5 MG, QD
     Route: 048
     Dates: start: 201303, end: 201312

REACTIONS (9)
  - Multiple sclerosis relapse [Recovered/Resolved with Sequelae]
  - Central nervous system lesion [Recovered/Resolved with Sequelae]
  - Restlessness [Unknown]
  - Ataxia [Unknown]
  - IIIrd nerve disorder [Unknown]
  - Paresis [Unknown]
  - Hypoaesthesia [Unknown]
  - Speech disorder [Unknown]
  - Nystagmus [Unknown]
